FAERS Safety Report 18552090 (Version 1)
Quarter: 2020Q4

REPORT INFORMATION
  Report Type: Other
  Country: CA (occurrence: CA)
  Receive Date: 20201126
  Receipt Date: 20201126
  Transmission Date: 20210114
  Serious: Yes (Other)
  Sender: FDA-Public Use
  Company Number: CA-CELLTRION INC.-2020CA032161

PATIENT

DRUGS (6)
  1. DETROL [Concomitant]
     Active Substance: TOLTERODINE TARTRATE
  2. RITUXIMAB (UNKNOWN) [Suspect]
     Active Substance: RITUXIMAB
     Indication: RHEUMATOID ARTHRITIS
     Dosage: 1000.0 MILLIGRAM, 1 EVERY 2 WEEKS
     Route: 042
  3. VALSARTAN. [Concomitant]
     Active Substance: VALSARTAN
  4. REBIF [Concomitant]
     Active Substance: INTERFERON BETA-1A
  5. CELEBREX [Concomitant]
     Active Substance: CELECOXIB
  6. PREDNISONE. [Concomitant]
     Active Substance: PREDNISONE

REACTIONS (5)
  - Fall [Unknown]
  - Endodontic procedure [Unknown]
  - Night sweats [Unknown]
  - Menopause [Unknown]
  - Joint dislocation [Unknown]
